FAERS Safety Report 5850435-5 (Version None)
Quarter: 2008Q3

REPORT INFORMATION
  Report Type: 
  Country: None (occurrence: None)
  Receive Date: 20080819
  Receipt Date: 20080812
  Transmission Date: 20090109
  Serious: Yes (Other)
  Sender: FDA-Public Use
  Company Number: BR-PFIZER INC-2008067869

PATIENT
  Sex: Female

DRUGS (3)
  1. DETRUSITOL LA [Suspect]
     Indication: HYPERTONIC BLADDER
     Route: 048
  2. ATENOLOL [Concomitant]
  3. HYGROTON [Concomitant]

REACTIONS (1)
  - CYSTITIS [None]
